FAERS Safety Report 8911107 (Version 1)
Quarter: 2012Q4

REPORT INFORMATION
  Report Type: Spontaneous
  Country: US (occurrence: None)
  Receive Date: 20121114
  Receipt Date: 20121114
  Transmission Date: 20130627
  Serious: No
  Sender: FDA-Public Use
  Company Number: None

PATIENT
  Age: 57 Year
  Sex: Female

DRUGS (2)
  1. CADUET [Suspect]
     Dates: start: 20080829, end: 20091130
  2. ISOTONIX OPC-3 [Suspect]
     Dates: start: 20090601, end: 20091130

REACTIONS (12)
  - Jaundice [None]
  - Vomiting [None]
  - Diarrhoea [None]
  - Pruritus [None]
  - Rash maculo-papular [None]
  - Weight decreased [None]
  - Aspartate aminotransferase increased [None]
  - Alanine aminotransferase increased [None]
  - Blood alkaline phosphatase increased [None]
  - Blood bilirubin increased [None]
  - Hepatomegaly [None]
  - Drug-induced liver injury [None]
